FAERS Safety Report 8848378 (Version 1)
Quarter: 2012Q4

REPORT INFORMATION
  Report Type: 
  Country: GB (occurrence: GB)
  Receive Date: 20121018
  Receipt Date: 20121018
  Transmission Date: 20130627
  Serious: Yes (Other)
  Sender: FDA-Public Use
  Company Number: GB-ASTRAZENECA-2012SE77803

PATIENT
  Age: 59 Year
  Sex: Female

DRUGS (1)
  1. CAPRELSA [Suspect]
     Route: 048

REACTIONS (1)
  - Bundle branch block right [Unknown]
